FAERS Safety Report 9928496 (Version 3)
Quarter: 2014Q1

REPORT INFORMATION
  Report Type: Report from Study
  Country: US (occurrence: US)
  Receive Date: 20140227
  Receipt Date: 20140326
  Transmission Date: 20141002
  Serious: Yes (Hospitalization)
  Sender: FDA-Public Use
  Company Number: US-JNJFOC-20140211831

PATIENT
  Age: 64 Year
  Sex: Female

DRUGS (6)
  1. XARELTO [Suspect]
     Indication: CEREBROVASCULAR ACCIDENT PROPHYLAXIS
     Route: 048
     Dates: start: 20140125, end: 20140217
  2. XARELTO [Suspect]
     Indication: ATRIAL FIBRILLATION
     Route: 048
     Dates: start: 20140125, end: 20140217
  3. XARELTO [Suspect]
     Indication: ANTICOAGULANT THERAPY
     Route: 048
     Dates: start: 20140125, end: 20140217
  4. AMIODARONE [Concomitant]
     Route: 065
  5. AMIODARONE [Concomitant]
     Route: 065
  6. CARVEDILOL [Concomitant]
     Route: 065

REACTIONS (4)
  - Atrial fibrillation [Recovered/Resolved]
  - Rectal haemorrhage [Unknown]
  - Rectal prolapse [Unknown]
  - Red blood cell count decreased [Unknown]
